FAERS Safety Report 9032563 (Version 1)
Quarter: 2013Q1

REPORT INFORMATION
  Report Type: Spontaneous
  Country: US (occurrence: US)
  Receive Date: 20130122
  Receipt Date: 20130122
  Transmission Date: 20140127
  Serious: No
  Sender: FDA-Public Use
  Company Number: US-PFIZER INC-2013024124

PATIENT
  Age: 65 Year
  Sex: Female

DRUGS (13)
  1. TIKOSYN [Suspect]
     Indication: MYOCARDIAL INFARCTION
     Dosage: 20 UG, 2X/DAY
     Dates: start: 201212
  2. LIPITOR [Concomitant]
     Dosage: 40 MG, UNK
  3. COUMADIN [Concomitant]
     Dosage: 5 MG, UNK
  4. POTASSIUM [Concomitant]
     Dosage: 10 MEQ, UNK
  5. ACETYLSALICYLIC ACID [Concomitant]
     Dosage: 81 MG, UNK
  6. ALDACTONE [Concomitant]
     Dosage: 25 MG, UNK
  7. LEVOXYL [Concomitant]
     Dosage: 0.125 MG, UNK
  8. ISOSORBIDE MONONITRATE [Concomitant]
     Dosage: 60 MG, UNK
  9. INSULIN [Concomitant]
     Dosage: UNK
  10. ZAROXOLYN [Concomitant]
     Dosage: 2.5 MG, UNK
  11. FOSAMAX [Concomitant]
     Dosage: 70 MG, UNK
  12. COREG [Concomitant]
     Dosage: 25 MG, UNK
  13. NITROSTAT [Concomitant]
     Dosage: 0.4 MG, UNK

REACTIONS (1)
  - Memory impairment [Unknown]
